FAERS Safety Report 7429137-X (Version None)
Quarter: 2011Q2

REPORT INFORMATION
  Report Type: 
  Country: None (occurrence: None)
  Receive Date: 20110421
  Receipt Date: 20101208
  Transmission Date: 20111010
  Serious: Yes (Hospitalization, Other)
  Sender: FDA-Public Use
  Company Number: US-BAYER-201038377NA

PATIENT
  Age: 36 Year
  Sex: Female
  Weight: 48 kg

DRUGS (8)
  1. YAZ [Suspect]
     Dosage: UNK
     Dates: start: 20060101, end: 20100101
  2. YAZ [Suspect]
     Dosage: UNK
     Dates: start: 20060601, end: 20091001
  3. LISINOPRIL [Concomitant]
  4. ALBUTEROL [Concomitant]
     Indication: ASTHMA
  5. PROPRANOLOL [Concomitant]
  6. YAZ [Suspect]
     Indication: CONTRACEPTION
     Route: 048
     Dates: start: 20080101, end: 20091101
  7. COREG [Concomitant]
  8. NSAID'S [Concomitant]

REACTIONS (7)
  - GALLBLADDER DISORDER [None]
  - BILIARY DYSKINESIA [None]
  - SYNCOPE [None]
  - PAIN [None]
  - GASTROINTESTINAL DISORDER [None]
  - BLOOD CHOLESTEROL INCREASED [None]
  - HYPERTENSION [None]
